FAERS Safety Report 24061902 (Version 1)
Quarter: 2024Q3

REPORT INFORMATION
  Report Type: Spontaneous
  Country: US (occurrence: US)
  Receive Date: 20240708
  Receipt Date: 20240708
  Transmission Date: 20241016
  Serious: Yes (Hospitalization, Other)
  Sender: PFIZER
  Company Number: US-PFIZER INC-PV202400088650

PATIENT
  Age: 61 Year
  Sex: Female

DRUGS (1)
  1. XELJANZ [Suspect]
     Active Substance: TOFACITINIB CITRATE
     Indication: Psoriatic arthropathy
     Dosage: 5 MG, 2X/DAY
     Route: 048
     Dates: end: 202406

REACTIONS (5)
  - Sepsis [Unknown]
  - Pyrexia [Not Recovered/Not Resolved]
  - Nausea [Not Recovered/Not Resolved]
  - Vomiting [Unknown]
  - Ear infection [Not Recovered/Not Resolved]

NARRATIVE: CASE EVENT DATE: 20240601
